FAERS Safety Report 16761934 (Version 2)
Quarter: 2019Q3

REPORT INFORMATION
  Report Type: Report from Study
  Country: JP (occurrence: JP)
  Receive Date: 20190830
  Receipt Date: 20190903
  Transmission Date: 20191005
  Serious: Yes (Hospitalization, Other)
  Sender: FDA-Public Use
  Company Number: JP-BRISTOL-MYERS SQUIBB COMPANY-BMS-2018-110987

PATIENT
  Age: 51 Year
  Sex: Female

DRUGS (2)
  1. YERVOY [Suspect]
     Active Substance: IPILIMUMAB
     Indication: MALIGNANT MELANOMA
     Dosage: 1 MG/KG, Q3W
     Route: 041
     Dates: start: 20181029, end: 20190208
  2. NIVOLUMAB [Suspect]
     Active Substance: NIVOLUMAB
     Indication: MALIGNANT MELANOMA
     Dosage: 80 MILLIGRAM, Q3WK
     Route: 065
     Dates: start: 20181029, end: 20190208

REACTIONS (5)
  - Non-cardiogenic pulmonary oedema [Unknown]
  - Intentional product use issue [Unknown]
  - Pyrexia [Unknown]
  - Hepatic function abnormal [Unknown]
  - Meningitis [Unknown]

NARRATIVE: CASE EVENT DATE: 20181116
